FAERS Safety Report 25986133 (Version 1)
Quarter: 2025Q4

REPORT INFORMATION
  Report Type: Spontaneous
  Country: US (occurrence: US)
  Receive Date: 20251101
  Receipt Date: 20251101
  Transmission Date: 20260117
  Serious: Yes (Other)
  Sender: TEVA
  Company Number: US-TEVA-VS-3386269

PATIENT
  Sex: Female

DRUGS (3)
  1. AUSTEDO XR [Suspect]
     Active Substance: DEUTETRABENAZINE
     Indication: Tardive dyskinesia
     Dosage: DAILY
     Route: 065
  2. AUSTEDO XR [Suspect]
     Active Substance: DEUTETRABENAZINE
     Indication: Tardive dyskinesia
     Dosage: DAILY
     Route: 065
  3. ABILIFY [Concomitant]
     Active Substance: ARIPIPRAZOLE
     Indication: Product used for unknown indication

REACTIONS (7)
  - Tardive dyskinesia [Unknown]
  - Drooling [Unknown]
  - Agitation [Unknown]
  - Tremor [Unknown]
  - Posture abnormal [Unknown]
  - Gait disturbance [Unknown]
  - Parkinsonism [Unknown]
